FAERS Safety Report 16418647 (Version 1)
Quarter: 2019Q2

REPORT INFORMATION
  Report Type: Report from Study
  Country: NL (occurrence: NL)
  Receive Date: 20190612
  Receipt Date: 20190612
  Transmission Date: 20190711
  Serious: Yes (Other)
  Sender: FDA-Public Use
  Company Number: NL-ACCORD-132271

PATIENT
  Age: 30 Year
  Sex: Female

DRUGS (2)
  1. FOLIC ACID. [Concomitant]
     Active Substance: FOLIC ACID
     Dosage: 10MG, 1X/W
     Dates: start: 20180604
  2. METHOTREXATE. [Suspect]
     Active Substance: METHOTREXATE
     Indication: PSORIATIC ARTHROPATHY
     Dosage: 10 MG, 1X/W
     Dates: start: 20190128, end: 20190212

REACTIONS (1)
  - Peritoneal abscess [Recovered/Resolved]

NARRATIVE: CASE EVENT DATE: 20190212
